FAERS Safety Report 19428372 (Version 1)
Quarter: 2021Q2

REPORT INFORMATION
  Report Type: Spontaneous
  Country: US (occurrence: US)
  Receive Date: 20210617
  Receipt Date: 20210617
  Transmission Date: 20210717
  Serious: Yes (Other)
  Sender: FDA-Public Use
  Company Number: US-TEVA-2021-US-1922436

PATIENT
  Age: 29 Year
  Sex: Female

DRUGS (1)
  1. PREDNISOLONE. [Suspect]
     Active Substance: PREDNISOLONE
     Indication: STEROID THERAPY
     Dosage: 40 MILLIGRAM DAILY;
     Route: 048

REACTIONS (3)
  - Blood bilirubin increased [Unknown]
  - International normalised ratio increased [Unknown]
  - Rebound effect [Unknown]
